FAERS Safety Report 4290437-6 (Version None)
Quarter: 2004Q1

REPORT INFORMATION
  Report Type: 
  Country: None (occurrence: None)
  Receive Date: 20040209
  Receipt Date: 20040123
  Transmission Date: 20041129
  Serious: Yes (Hospitalization)
  Sender: FDA-Public Use
  Company Number: S04-SWI-00443-01

PATIENT
  Age: 80 Year
  Sex: Female

DRUGS (10)
  1. CIPRALEX (ESCITALOPRAM) [Suspect]
     Indication: DEPRESSION
     Dosage: 5 MG QD PO
     Route: 048
     Dates: start: 20030321
  2. CIPRALEX (ESCITALOPRAM) [Suspect]
     Indication: DEPRESSION
     Dosage: 10 MG QD PO
     Route: 048
     Dates: end: 20030501
  3. CIPRALEX (ESCITALOPRAM) [Suspect]
     Indication: DEPRESSION
     Dosage: 10 MG QD PO
     Route: 048
     Dates: start: 20030601
  4. CIPRALEX (ESCITALOPRAM) [Suspect]
     Indication: DEPRESSION
     Dosage: 15 MG QD PO
     Route: 048
     Dates: start: 20030501, end: 20030605
  5. LAMICTAL [Suspect]
     Dosage: 100 MG QD PO
     Route: 048
     Dates: start: 20030515, end: 20030603
  6. LAMICTAL [Suspect]
     Dates: start: 20030505, end: 20030515
  7. ZYPREXA [Suspect]
     Dosage: 2.5 MG QD PO
     Route: 048
     Dates: start: 20030514, end: 20030519
  8. ZYPREXA [Suspect]
     Dosage: 5 MG QD PO
     Route: 048
     Dates: start: 20030519, end: 20030606
  9. REMERON [Concomitant]
  10. LORAZEPAM [Concomitant]

REACTIONS (15)
  - ASPARTATE AMINOTRANSFERASE INCREASED [None]
  - C-REACTIVE PROTEIN INCREASED [None]
  - DEPRESSED LEVEL OF CONSCIOUSNESS [None]
  - DERMATITIS ALLERGIC [None]
  - DIFFICULTY IN WALKING [None]
  - EXANTHEM [None]
  - FALL [None]
  - HAEMATOCRIT DECREASED [None]
  - HAEMOGLOBIN DECREASED [None]
  - HAEMOTHORAX [None]
  - LEUKOPENIA [None]
  - MARKEDLY REDUCED DIETARY INTAKE [None]
  - PRURITUS [None]
  - RIB FRACTURE [None]
  - WHEELCHAIR USER [None]
